FAERS Safety Report 21366479 (Version 2)
Quarter: 2023Q1

REPORT INFORMATION
  Report Type: Report from Study
  Country: BR (occurrence: BR)
  Receive Date: 20220923
  Receipt Date: 20230313
  Transmission Date: 20230418
  Serious: Yes (Other)
  Sender: FDA-Public Use
  Company Number: BR-JNJFOC-20220933550

PATIENT
  Sex: Male
  Weight: 67 kg

DRUGS (1)
  1. STELARA [Suspect]
     Active Substance: USTEKINUMAB
     Indication: Psoriasis
     Dosage: STARTED 5 YEARS AGO
     Route: 058

REACTIONS (3)
  - Visual impairment [Unknown]
  - Eye irritation [Unknown]
  - Therapeutic response decreased [Unknown]
